FAERS Safety Report 19722217 (Version 1)
Quarter: 2021Q3

REPORT INFORMATION
  Report Type: Spontaneous
  Country: RU (occurrence: RU)
  Receive Date: 20210819
  Receipt Date: 20210819
  Transmission Date: 20211014
  Serious: Yes (Other)
  Sender: FDA-Public Use
  Company Number: RU-UCBSA-2021038709

PATIENT
  Age: 31 Year

DRUGS (3)
  1. VIMPAT [Suspect]
     Active Substance: LACOSAMIDE
     Indication: SEIZURE
     Dosage: 50 MILLIGRAM, 2X/DAY (BID)
  2. FINLEPSIN [Concomitant]
     Active Substance: CARBAMAZEPINE
     Indication: PRODUCT USED FOR UNKNOWN INDICATION
     Dosage: UNK
  3. LAMITOR [Concomitant]
     Active Substance: LAMOTRIGINE
     Indication: SEIZURE
     Dosage: 100 MG DAILY

REACTIONS (9)
  - Drug ineffective [Unknown]
  - Partial seizures [Recovering/Resolving]
  - Arthralgia [Recovering/Resolving]
  - Urinary retention [Recovering/Resolving]
  - Hyperaesthesia [Recovering/Resolving]
  - Mental disorder [Recovering/Resolving]
  - Paraesthesia [Recovering/Resolving]
  - Myalgia [Recovering/Resolving]
  - Generalised tonic-clonic seizure [Recovering/Resolving]
